FAERS Safety Report 14399705 (Version 2)
Quarter: 2018Q2

REPORT INFORMATION
  Report Type: Spontaneous
  Country: PR (occurrence: US)
  Receive Date: 20180117
  Receipt Date: 20180402
  Transmission Date: 20180711
  Serious: Yes (Hospitalization)
  Sender: FDA-Public Use
  Company Number: PR-JNJFOC-20171230065

PATIENT
  Age: 62 Year
  Sex: Male

DRUGS (6)
  1. XARELTO [Suspect]
     Active Substance: RIVAROXABAN
     Indication: ATRIAL FIBRILLATION
     Dosage: 15MG - 20MG
     Route: 048
     Dates: start: 20161026
  2. XARELTO [Suspect]
     Active Substance: RIVAROXABAN
     Indication: CEREBROVASCULAR ACCIDENT PROPHYLAXIS
     Dosage: 15MG - 20MG
     Route: 048
     Dates: start: 20161026
  3. XARELTO [Suspect]
     Active Substance: RIVAROXABAN
     Indication: THROMBOSIS PROPHYLAXIS
     Route: 048
  4. XARELTO [Suspect]
     Active Substance: RIVAROXABAN
     Indication: THROMBOSIS PROPHYLAXIS
     Dosage: 15MG - 20MG
     Route: 048
     Dates: start: 20161026
  5. XARELTO [Suspect]
     Active Substance: RIVAROXABAN
     Indication: CEREBROVASCULAR ACCIDENT PROPHYLAXIS
     Route: 048
  6. XARELTO [Suspect]
     Active Substance: RIVAROXABAN
     Indication: ATRIAL FIBRILLATION
     Route: 048

REACTIONS (1)
  - Epistaxis [Recovered/Resolved]

NARRATIVE: CASE EVENT DATE: 20160708
